FAERS Safety Report 6600124-4 (Version None)
Quarter: 2010Q1

REPORT INFORMATION
  Report Type: 
  Country: None (occurrence: None)
  Receive Date: 20100224
  Receipt Date: 20100218
  Transmission Date: 20100710
  Serious: Yes (Other)
  Sender: FDA-Public Use
  Company Number: GXKR2010DE01828

PATIENT
  Sex: Female
  Weight: 80 kg

DRUGS (2)
  1. RAMIPRIL 1A PHARMA PLUS (NGX) [Suspect]
     Indication: HYPERTENSION
     Dosage: 1 DF, QD
     Route: 048
     Dates: start: 20080129, end: 20100212
  2. DORZOLAMIDE [Concomitant]
     Indication: INTRAOCULAR PRESSURE INCREASED
     Dosage: UNK
     Route: 031

REACTIONS (3)
  - ANGLE CLOSURE GLAUCOMA [None]
  - HEART RATE INCREASED [None]
  - INTRAOCULAR PRESSURE INCREASED [None]
